FAERS Safety Report 24567690 (Version 1)
Quarter: 2024Q4

REPORT INFORMATION
  Report Type: Report from Study
  Country: US (occurrence: US)
  Receive Date: 20241031
  Receipt Date: 20241031
  Transmission Date: 20250115
  Serious: Yes (Life-Threatening)
  Sender: ARDELYX
  Company Number: US-ARDELYX-2024ARDX007770

PATIENT
  Sex: Female
  Weight: 118 kg

DRUGS (3)
  1. IBSRELA [Suspect]
     Active Substance: TENAPANOR HYDROCHLORIDE
     Indication: Gastrointestinal disorder
     Dosage: UNK
     Route: 048
     Dates: start: 2024, end: 2024
  2. EPIPEN [Concomitant]
     Active Substance: EPINEPHRINE
     Indication: Bronchospasm
     Dosage: UNK
     Route: 065
     Dates: start: 2024
  3. EPIPEN [Concomitant]
     Active Substance: EPINEPHRINE
     Indication: Hypersensitivity

REACTIONS (2)
  - Throat tightness [Recovered/Resolved]
  - Product use in unapproved indication [Unknown]

NARRATIVE: CASE EVENT DATE: 20240101
